FAERS Safety Report 7346646-2 (Version None)
Quarter: 2011Q1

REPORT INFORMATION
  Report Type: 
  Country: None (occurrence: None)
  Receive Date: 20110311
  Receipt Date: 20110301
  Transmission Date: 20110831
  Serious: Yes (Life-Threatening, Hospitalization)
  Sender: FDA-Public Use
  Company Number: JP-JNJFOC-20110206924

PATIENT
  Sex: Male
  Weight: 79 kg

DRUGS (14)
  1. BLOPRESS [Concomitant]
     Indication: HYPERTENSION
     Route: 048
  2. FLORID [Suspect]
     Route: 049
  3. MUCOSTA [Concomitant]
     Route: 048
  4. THYRADIN S [Concomitant]
     Indication: HYPOTHYROIDISM
     Route: 048
  5. NORVASC [Concomitant]
     Indication: HYPERTENSION
     Route: 048
  6. FERO GRADUMET [Concomitant]
     Indication: IRON DEFICIENCY ANAEMIA
     Route: 048
  7. FLORID [Suspect]
     Indication: OESOPHAGEAL CANDIDIASIS
     Route: 049
  8. VOLTAREN [Concomitant]
     Route: 048
  9. SHAKUYAKUKANZOUTOU [Concomitant]
     Route: 048
  10. WARFARIN POTASSIUM [Interacting]
     Indication: DEEP VEIN THROMBOSIS
     Route: 048
  11. LIPITOR [Concomitant]
     Indication: HYPERLIPIDAEMIA
     Route: 048
  12. WARFARIN POTASSIUM [Interacting]
     Route: 048
  13. ASPIRIN [Concomitant]
     Indication: ANGINA PECTORIS
     Route: 048
  14. URIEF [Concomitant]
     Route: 048

REACTIONS (6)
  - BLOOD CREATINE PHOSPHOKINASE INCREASED [None]
  - MYALGIA [None]
  - HAEMATURIA [None]
  - HAEMORRHAGE [None]
  - INTERNATIONAL NORMALISED RATIO INCREASED [None]
  - DRUG INTERACTION [None]
